FAERS Safety Report 7676957-2 (Version None)
Quarter: 2011Q3

REPORT INFORMATION
  Report Type: 
  Country: None (occurrence: None)
  Receive Date: 20110811
  Receipt Date: 20110805
  Transmission Date: 20111222
  Serious: Yes (Hospitalization)
  Sender: FDA-Public Use
  Company Number: PHHO2011IT13466

PATIENT
  Sex: Male
  Weight: 70 kg

DRUGS (3)
  1. BACTRIM [Concomitant]
     Indication: PROPHYLAXIS
  2. SPIRONOLACTONE [Concomitant]
  3. TASIGNA [Suspect]
     Indication: ACUTE LYMPHOCYTIC LEUKAEMIA
     Dosage: 800 MG, UNK
     Route: 048
     Dates: start: 20110604, end: 20110710

REACTIONS (1)
  - VIRAL INFECTION [None]
